FAERS Safety Report 11418431 (Version 1)
Quarter: 2015Q3

REPORT INFORMATION
  Report Type: Spontaneous
  Country: US (occurrence: US)
  Receive Date: 20150826
  Receipt Date: 20150826
  Transmission Date: 20151125
  Serious: No
  Sender: FDA-Public Use
  Company Number: US-NOVEN PHARMACEUTICALS, INC.-US2015000343

PATIENT
  Age: 30 Year
  Sex: Female

DRUGS (1)
  1. MINIVELLE [Suspect]
     Active Substance: ESTRADIOL
     Indication: AUTOIMMUNE DISORDER
     Dosage: 0.025 MG, QD
     Route: 062

REACTIONS (2)
  - Acne [Unknown]
  - Drug prescribing error [Unknown]
